FAERS Safety Report 6704328-1 (Version None)
Quarter: 2010Q2

REPORT INFORMATION
  Report Type: 
  Country: None (occurrence: None)
  Receive Date: 20100430
  Receipt Date: 20100421
  Transmission Date: 20101027
  Serious: Yes (Hospitalization)
  Sender: FDA-Public Use
  Company Number: US-JNJFOC-20100406268

PATIENT
  Sex: Female
  Weight: 85.73 kg

DRUGS (3)
  1. REMICADE [Suspect]
     Indication: PUSTULAR PSORIASIS
     Route: 042
  2. REMICADE [Suspect]
     Route: 042
  3. DITROPAN [Concomitant]
     Indication: BLADDER DISORDER

REACTIONS (4)
  - INFUSION RELATED REACTION [None]
  - KNEE ARTHROPLASTY [None]
  - THROAT TIGHTNESS [None]
  - TRISMUS [None]
